FAERS Safety Report 6585258-5 (Version None)
Quarter: 2010Q1

REPORT INFORMATION
  Report Type: 
  Country: None (occurrence: None)
  Receive Date: 20100204
  Receipt Date: 20100127
  Transmission Date: 20100710
  Serious: Yes (Other)
  Sender: FDA-Public Use
  Company Number: 020656000A

PATIENT
  Sex: Male

DRUGS (2)
  1. PREVIDENT 5000 TOOTHPASTE, 1.1% SODIUM FLUORIDE, RX [Suspect]
     Indication: DENTAL CARIES
     Dosage: NI, ONCE A DAY, ORAL
     Route: 048
  2. PRODUCT FOR DRY MOUTH [Concomitant]

REACTIONS (4)
  - HYPERSENSITIVITY [None]
  - OESOPHAGEAL OEDEMA [None]
  - OROPHARYNGEAL PAIN [None]
  - SWELLING [None]
